FAERS Safety Report 5631802-1 (Version None)
Quarter: 2008Q1

REPORT INFORMATION
  Report Type: 
  Country: None (occurrence: None)
  Receive Date: 20080213
  Receipt Date: 20080201
  Transmission Date: 20080703
  Serious: Yes (Other)
  Sender: FDA-Public Use
  Company Number: 2008SI001863

PATIENT
  Age: 32 Year
  Sex: Female

DRUGS (1)
  1. IBUPROFEN [Suspect]
     Indication: DRUG USE FOR UNKNOWN INDICATION
     Dosage: 600 MG 7_1_DAY; ORAL
     Route: 048
     Dates: start: 20080131, end: 20080131

REACTIONS (2)
  - FATIGUE [None]
  - INTENTIONAL OVERDOSE [None]
